FAERS Safety Report 4416430-8 (Version None)
Quarter: 2004Q3

REPORT INFORMATION
  Report Type: 
  Country: None (occurrence: None)
  Receive Date: 20040802
  Receipt Date: 20040720
  Transmission Date: 20050211
  Serious: Yes (Hospitalization)
  Sender: FDA-Public Use
  Company Number: 2004224195IN

PATIENT
  Age: 50 Year
  Sex: Male

DRUGS (4)
  1. EPIRUBICIN [Suspect]
     Indication: NON-HODGKIN'S LYMPHOMA
     Dosage: 60 MG/M2, CYCLE 1
  2. CYCLOPHOSPHAMIDE [Concomitant]
  3. VINCRISTINE [Concomitant]
  4. PREDNISOLONE [Concomitant]

REACTIONS (3)
  - ANGINA UNSTABLE [None]
  - CARDIOTOXICITY [None]
  - MYOCARDIAL INFARCTION [None]
